FAERS Safety Report 11779960 (Version 1)
Quarter: 2015Q4

REPORT INFORMATION
  Report Type: Spontaneous
  Country: US (occurrence: US)
  Receive Date: 20151125
  Receipt Date: 20151125
  Transmission Date: 20160304
  Serious: No
  Sender: FDA-Public Use
  Company Number: US-009507513-1511USA012590

PATIENT
  Age: 33 Year
  Sex: Female

DRUGS (2)
  1. ALLEGRA [Concomitant]
     Active Substance: FEXOFENADINE HYDROCHLORIDE
  2. SINGULAIR [Suspect]
     Active Substance: MONTELUKAST SODIUM
     Indication: SEASONAL ALLERGY
     Dosage: 10 MG, ONCE DAILY
     Route: 048
     Dates: end: 20151118

REACTIONS (3)
  - Subcutaneous abscess [Recovering/Resolving]
  - Acne [Recovering/Resolving]
  - Dermal cyst [Recovering/Resolving]
